FAERS Safety Report 20667978 (Version 1)
Quarter: 2022Q2

REPORT INFORMATION
  Report Type: Spontaneous
  Country: None (occurrence: US)
  Receive Date: 20220404
  Receipt Date: 20220404
  Transmission Date: 20220721
  Serious: Yes (Hospitalization)
  Sender: FDA-Public Use
  Company Number: US-MLV Pharma LLC-2127364

PATIENT
  Age: 66 Year
  Sex: Female

DRUGS (1)
  1. NITROFURANTOIN [Suspect]
     Active Substance: NITROFURANTOIN
     Indication: Urinary tract infection
     Route: 048

REACTIONS (5)
  - Systemic inflammatory response syndrome [Recovered/Resolved]
  - Oedema peripheral [Recovered/Resolved]
  - Leukocytosis [Recovered/Resolved]
  - Breath sounds abnormal [Recovered/Resolved]
  - Headache [Recovered/Resolved]
